FAERS Safety Report 4478866-9 (Version None)
Quarter: 2004Q4

REPORT INFORMATION
  Report Type: 
  Country: None (occurrence: None)
  Receive Date: 20041014
  Receipt Date: 20041001
  Transmission Date: 20050328
  Serious: Yes (Disabling)
  Sender: FDA-Public Use
  Company Number: HQWYE120120SEP04

PATIENT
  Age: 58 Year
  Sex: Male

DRUGS (10)
  1. CORDARONE [Suspect]
     Indication: ATRIAL FIBRILLATION
     Dosage: SEE IMAGE
     Route: 048
     Dates: start: 20040415, end: 20040422
  2. CORDARONE [Suspect]
     Indication: TACHYARRHYTHMIA
     Dosage: SEE IMAGE
     Route: 048
     Dates: start: 20040415, end: 20040422
  3. CORDARONE [Suspect]
     Indication: ATRIAL FIBRILLATION
     Dosage: SEE IMAGE
     Route: 048
     Dates: start: 20040423, end: 20040502
  4. CORDARONE [Suspect]
     Indication: TACHYARRHYTHMIA
     Dosage: SEE IMAGE
     Route: 048
     Dates: start: 20040423, end: 20040502
  5. CORDARONE [Suspect]
     Indication: ATRIAL FIBRILLATION
     Dosage: SEE IMAGE
     Route: 048
     Dates: start: 20040505, end: 20040509
  6. CORDARONE [Suspect]
     Indication: TACHYARRHYTHMIA
     Dosage: SEE IMAGE
     Route: 048
     Dates: start: 20040505, end: 20040509
  7. CORDARONE [Suspect]
     Indication: ATRIAL FIBRILLATION
     Dosage: SEE IMAGE
     Route: 048
     Dates: start: 20040509, end: 20040816
  8. CORDARONE [Suspect]
     Indication: TACHYARRHYTHMIA
     Dosage: SEE IMAGE
     Route: 048
     Dates: start: 20040509, end: 20040816
  9. CORDAREX (AMIODARONE, INJECTION) [Suspect]
     Indication: ATRIAL FIBRILLATION
     Dosage: INTRAVENOUS
     Route: 042
     Dates: start: 20040503, end: 20040504
  10. CORDAREX (AMIODARONE, INJECTION) [Suspect]
     Indication: TACHYARRHYTHMIA
     Dosage: INTRAVENOUS
     Route: 042
     Dates: start: 20040503, end: 20040504

REACTIONS (8)
  - AORTIC DISORDER [None]
  - DEPRESSION [None]
  - IMPAIRED DRIVING ABILITY [None]
  - OPTIC ISCHAEMIC NEUROPATHY [None]
  - READING DISORDER [None]
  - SPINAL OSTEOARTHRITIS [None]
  - TACHYARRHYTHMIA [None]
  - VISUAL FIELD DEFECT [None]
